FAERS Safety Report 17419853 (Version 2)
Quarter: 2020Q1

REPORT INFORMATION
  Report Type: Spontaneous
  Country: US (occurrence: US)
  Receive Date: 20200214
  Receipt Date: 20200220
  Transmission Date: 20200409
  Serious: No
  Sender: FDA-Public Use
  Company Number: US-TEVA-2020-US-1170270

PATIENT
  Sex: Male

DRUGS (12)
  1. LIPITOR [Concomitant]
     Active Substance: ATORVASTATIN CALCIUM
  2. BIOTIN [Concomitant]
     Active Substance: BIOTIN
  3. ICLUSIG [Concomitant]
     Active Substance: PONATINIB
  4. THC FREE [Concomitant]
  5. IMATINIB. [Suspect]
     Active Substance: IMATINIB MESYLATE
     Route: 065
  6. TYLENOL [Concomitant]
     Active Substance: ACETAMINOPHEN
  7. ALLOPURINOL. [Concomitant]
     Active Substance: ALLOPURINOL
  8. SYNRIBO [Suspect]
     Active Substance: OMACETAXINE MEPESUCCINATE
     Dosage: 2.8 MG/ 0.8 ML BID X 7 DAYS OF 28 DAY CYCLE
     Dates: start: 20191217
  9. ALLEGRA [Concomitant]
     Active Substance: FEXOFENADINE HYDROCHLORIDE
  10. SYNRIBO [Suspect]
     Active Substance: OMACETAXINE MEPESUCCINATE
     Indication: CHRONIC MYELOID LEUKAEMIA
     Dosage: 2.8 MG/ 0.8 ML BID X 7 DAYS OF 28 DAY CYCLE
     Dates: start: 20180625
  11. ZOFRAN [Concomitant]
     Active Substance: ONDANSETRON HYDROCHLORIDE
  12. METFORMIN HCL [Concomitant]
     Active Substance: METFORMIN HYDROCHLORIDE

REACTIONS (4)
  - Poor quality sleep [Unknown]
  - Splenomegaly [Unknown]
  - Musculoskeletal pain [Unknown]
  - Nausea [Unknown]
